FAERS Safety Report 6163397-0 (Version None)
Quarter: 2009Q2

REPORT INFORMATION
  Report Type: 
  Country: None (occurrence: None)
  Receive Date: 20090422
  Receipt Date: 20090413
  Transmission Date: 20091009
  Serious: Yes (Death, Hospitalization)
  Sender: FDA-Public Use
  Company Number: PHHY2009JP13876

PATIENT
  Age: 34 Year
  Sex: Male

DRUGS (3)
  1. CARBAMAZEPINE [Suspect]
     Indication: GRAND MAL CONVULSION
  2. PHENOBARBITAL [Concomitant]
  3. VALPROIC ACID [Concomitant]

REACTIONS (5)
  - BEDRIDDEN [None]
  - DEATH [None]
  - ELECTROENCEPHALOGRAM ABNORMAL [None]
  - GASTROINTESTINAL TUBE INSERTION [None]
  - STATUS EPILEPTICUS [None]
